FAERS Safety Report 25594245 (Version 1)
Quarter: 2025Q3

REPORT INFORMATION
  Report Type: Spontaneous
  Country: ZA (occurrence: ZA)
  Receive Date: 20250723
  Receipt Date: 20250723
  Transmission Date: 20251020
  Serious: Yes (Death, Other)
  Sender: RANBAXY
  Company Number: ZA-SUN PHARMACEUTICAL INDUSTRIES LTD-2025RR-517831

PATIENT
  Age: 38 Year
  Sex: Female

DRUGS (5)
  1. CEFTRIAXONE [Suspect]
     Active Substance: CEFTRIAXONE
     Indication: Renal failure
     Route: 042
  2. WARFARIN [Suspect]
     Active Substance: WARFARIN
     Indication: Product used for unknown indication
     Route: 065
  3. VANCOMYCIN [Suspect]
     Active Substance: VANCOMYCIN
     Indication: Corynebacterium infection
     Route: 042
  4. GENTAMICIN [Suspect]
     Active Substance: GENTAMICIN
     Indication: Corynebacterium infection
     Route: 065
  5. PENICILLIN G [Suspect]
     Active Substance: PENICILLIN G
     Indication: Corynebacterium infection
     Route: 042

REACTIONS (3)
  - International normalised ratio increased [Unknown]
  - Drug ineffective [Fatal]
  - Disease progression [Fatal]
